FAERS Safety Report 6766856-2 (Version None)
Quarter: 2010Q2

REPORT INFORMATION
  Report Type: 
  Country: None (occurrence: None)
  Receive Date: 20100609
  Receipt Date: 20100526
  Transmission Date: 20101027
  Serious: Yes (Life-Threatening, Hospitalization)
  Sender: FDA-Public Use
  Company Number: 220047J10GBR

PATIENT
  Age: 14 Year
  Sex: Male
  Weight: 43 kg

DRUGS (6)
  1. SAIZEN [Suspect]
     Indication: DRUG USE FOR UNKNOWN INDICATION
     Dosage: 1.1 MG, 1 IN 1 D,
     Dates: start: 19970101
  2. CLOBAZAM [Concomitant]
  3. PENICILLIN (BENZYLPENICILLIN) [Concomitant]
  4. VALPROATE SODIUM [Concomitant]
  5. LISINOPRIL [Concomitant]
  6. LEVOTHYROXINE SODIUM [Concomitant]

REACTIONS (1)
  - PNEUMONIA MYCOPLASMAL [None]
